FAERS Safety Report 6987942-8 (Version None)
Quarter: 2010Q3

REPORT INFORMATION
  Report Type: 
  Country: None (occurrence: None)
  Receive Date: 20100916
  Receipt Date: 20100702
  Transmission Date: 20110219
  Serious: No
  Sender: FDA-Public Use
  Company Number: US-ABBOTT-10P-163-0655526-00

PATIENT
  Sex: Male

DRUGS (18)
  1. TRILIPIX [Suspect]
     Indication: BLOOD CHOLESTEROL INCREASED
     Dates: start: 20100630
  2. COREG [Concomitant]
     Indication: CARDIAC OPERATION
  3. VASOTEC [Concomitant]
     Indication: HYPERTENSION
  4. PLAVIX [Concomitant]
     Indication: CORONARY ARTERIAL STENT INSERTION
  5. DIGOXIN [Concomitant]
     Indication: CARDIAC DISORDER
  6. AMIODARONE HCL [Concomitant]
     Indication: CARDIAC DISORDER
  7. FUROSEMIDE [Concomitant]
     Indication: HYPERTENSION
  8. OMEPRAZOLE [Concomitant]
     Indication: GASTROOESOPHAGEAL REFLUX DISEASE
  9. PRAVASTATIN [Concomitant]
     Indication: BLOOD CHOLESTEROL INCREASED
  10. SELENIUM [Concomitant]
     Indication: THYROID DISORDER
  11. ASCORBIC ACID [Concomitant]
     Indication: SUPPLEMENTATION THERAPY
  12. CO Q10 [Concomitant]
     Indication: SUPPLEMENTATION THERAPY
  13. FISH OIL [Concomitant]
     Indication: SUPPLEMENTATION THERAPY
  14. VITAMIN D [Concomitant]
     Indication: VITAMIN SUPPLEMENTATION
  15. VITAMIN B COMPLEX CAP [Concomitant]
     Indication: VITAMIN SUPPLEMENTATION
  16. CENTRUM SILVER [Concomitant]
     Indication: VITAMIN SUPPLEMENTATION
  17. PROSTAMEADOW [Concomitant]
     Indication: PROSTATIC DISORDER
  18. ALPHA LIPROIC ACID [Concomitant]
     Indication: MEDICAL DIET

REACTIONS (1)
  - HYPOAESTHESIA [None]
